FAERS Safety Report 22037045 (Version 2)
Quarter: 2023Q2

REPORT INFORMATION
  Report Type: Spontaneous
  Country: JP (occurrence: JP)
  Receive Date: 20230226
  Receipt Date: 20230407
  Transmission Date: 20230721
  Serious: Yes (Other)
  Sender: FDA-Public Use
  Company Number: JP-JNJFOC-20230234033

PATIENT
  Age: 64 Year
  Sex: Male

DRUGS (8)
  1. TREMFYA [Suspect]
     Active Substance: GUSELKUMAB
     Indication: Psoriatic arthropathy
     Dosage: DOSE UNKNOWN
     Route: 058
     Dates: start: 202108, end: 202109
  2. TREMFYA [Suspect]
     Active Substance: GUSELKUMAB
  3. TREMFYA [Suspect]
     Active Substance: GUSELKUMAB
  4. PREDNISOLONE [Suspect]
     Active Substance: PREDNISOLONE
     Indication: Lung neoplasm malignant
     Route: 065
  5. PREDNISOLONE [Suspect]
     Active Substance: PREDNISOLONE
     Dosage: 15-20MG
     Route: 065
     Dates: start: 202106
  6. PREDNISOLONE [Suspect]
     Active Substance: PREDNISOLONE
     Route: 065
  7. CELECOXIB [Concomitant]
     Active Substance: CELECOXIB
     Indication: Psoriatic arthropathy
     Route: 065
  8. BETAMETHASONE\CALCIPOTRIENE [Concomitant]
     Active Substance: BETAMETHASONE\CALCIPOTRIENE
     Indication: Psoriatic arthropathy
     Dosage: UNKNOWN
     Route: 062

REACTIONS (1)
  - Pulmonary tuberculosis [Recovered/Resolved]

NARRATIVE: CASE EVENT DATE: 20211001
